FAERS Safety Report 5229052-6 (Version None)
Quarter: 2007Q1

REPORT INFORMATION
  Report Type: 
  Country: None (occurrence: None)
  Receive Date: 20061201
  Receipt Date: 20061002
  Transmission Date: 20070707
  Serious: No
  Sender: FDA-Public Use
  Company Number: US200608000632

PATIENT
  Age: 58 Year
  Sex: Female

DRUGS (6)
  1. CYMBALTA [Suspect]
     Indication: DEPRESSION
     Dosage: 120 MG, DAILY (1/D); 240 MG, DAILY (1/D)
     Dates: start: 20050101
  2. CYMBALTA [Suspect]
     Indication: DEPRESSION
     Dosage: 120 MG, DAILY (1/D); 240 MG, DAILY (1/D)
     Dates: start: 20060601
  3. LEVOXYL [Concomitant]
  4. AMBIEN [Concomitant]
  5. LAMICTAL [Concomitant]
  6. TAMOXIFEN CITRATE [Concomitant]

REACTIONS (2)
  - ACCIDENTAL OVERDOSE [None]
  - MEDICATION ERROR [None]
